FAERS Safety Report 8802646 (Version 1)
Quarter: 2012Q4

REPORT INFORMATION
  Report Type: 
  Country: US (occurrence: US)
  Receive Date: 20120921
  Receipt Date: 20120921
  Transmission Date: 20130627
  Serious: Yes (Disabling)
  Sender: FDA-Public Use
  Company Number: US-PFIZER INC-2012231869

PATIENT
  Age: 62 Year
  Sex: Male
  Weight: 86.17 kg

DRUGS (5)
  1. ZITHROMAX [Suspect]
     Indication: UPPER RESPIRATORY TRACT INFECTION
     Dosage: UNK
     Dates: start: 20120410, end: 20120415
  2. METFORMIN [Concomitant]
     Indication: DIABETES MELLITUS
     Dosage: 1000 mg, 1x/day
  3. MULTIVITAMINS [Concomitant]
     Dosage: UNK, daily
  4. DIOVAN (VALSARTAN) [Concomitant]
     Indication: HYPERTENSION
     Dosage: 160 mg, 1x/day
  5. ACETYLSALICYLIC ACID [Concomitant]
     Dosage: 81 mg, 1x/day

REACTIONS (3)
  - Ageusia [Not Recovered/Not Resolved]
  - Anosmia [Not Recovered/Not Resolved]
  - Palpitations [Recovered/Resolved]
